FAERS Safety Report 7506168-2 (Version None)
Quarter: 2011Q2

REPORT INFORMATION
  Report Type: 
  Country: None (occurrence: None)
  Receive Date: 20110526
  Receipt Date: 20110523
  Transmission Date: 20111010
  Serious: Yes (Life-Threatening, Hospitalization, Other)
  Sender: FDA-Public Use
  Company Number: US-PFIZER INC-2011110644

PATIENT
  Sex: Male

DRUGS (7)
  1. KLOR-CON [Concomitant]
     Indication: MEDICAL DIET
     Dosage: UNK
  2. LEXAPRO [Concomitant]
     Indication: DEPRESSION
     Dosage: UNK
  3. LANTUS [Concomitant]
     Indication: DIABETES MELLITUS
     Dosage: UNK
     Dates: start: 19960101
  4. CHANTIX [Suspect]
     Indication: SMOKING CESSATION THERAPY
     Dosage: 0.5 MG PILL DAILY AND 1 MG PILLS DAILY
     Dates: start: 20090917, end: 20090923
  5. SIMVASTATIN [Concomitant]
     Indication: BLOOD CHOLESTEROL INCREASED
     Dosage: UNK
  6. PLAVIX [Concomitant]
     Indication: HYPERSENSITIVITY
     Dosage: UNK
  7. HUMULIN R [Concomitant]
     Indication: DIABETES MELLITUS
     Dosage: UNK

REACTIONS (1)
  - CONVULSION [None]
